FAERS Safety Report 8518996-5 (Version None)
Quarter: 2012Q3

REPORT INFORMATION
  Report Type: 
  Country: None (occurrence: None)
  Receive Date: 20120718
  Receipt Date: 20120709
  Transmission Date: 20120928
  Serious: Yes (Death)
  Sender: FDA-Public Use
  Company Number: AU-ACTELION-A-CH2012-68365

PATIENT
  Sex: Female
  Weight: 53 kg

DRUGS (12)
  1. TRACLEER [Suspect]
     Indication: PULMONARY ARTERIAL HYPERTENSION
     Dosage: 125 MG, BID
     Route: 048
     Dates: start: 20090601, end: 20120708
  2. METHOTREXATE [Concomitant]
  3. FOLIC ACID [Concomitant]
  4. FUROSEMIDE [Concomitant]
  5. TRACLEER [Suspect]
     Dosage: 62.5 MG, BID
     Route: 048
     Dates: start: 20090501, end: 20090601
  6. OXYGEN [Concomitant]
  7. SILDENAFIL [Concomitant]
  8. VYTORIN [Concomitant]
  9. SPIRONOLACTONE [Concomitant]
  10. ESOMEPRAZOLE [Concomitant]
  11. OMEPRAZOLE [Concomitant]
  12. ACETYLSALICYLIC ACID SRT [Concomitant]

REACTIONS (2)
  - SUDDEN CARDIAC DEATH [None]
  - CARDIAC ARREST [None]
